FAERS Safety Report 9624230 (Version 2)
Quarter: 2013Q4

REPORT INFORMATION
  Report Type: Spontaneous
  Country: US (occurrence: US)
  Receive Date: 20131015
  Receipt Date: 20131015
  Transmission Date: 20140711
  Serious: No
  Sender: FDA-Public Use
  Company Number: US-B.I. PHARMACEUTICALS,INC./RIDGEFIELD-2013-BI-30726BP

PATIENT
  Age: 81 Year
  Sex: Female
  Weight: 70 kg

DRUGS (6)
  1. COMBIVENT [Suspect]
     Indication: CHRONIC OBSTRUCTIVE PULMONARY DISEASE
     Dosage: STRENGTH : 20 MCG / 100 MCG; DAILY DOSE: 80 MCG/ 400 MCG
     Route: 055
     Dates: start: 201308
  2. IMDUR [Concomitant]
     Indication: HYPERTENSION
     Dosage: 60 MG
     Route: 048
  3. XANAX [Concomitant]
     Indication: ANXIETY
     Dosage: 0.5 MG
     Route: 048
  4. VITAMIN D [Concomitant]
     Route: 048
  5. BENICAR [Concomitant]
     Indication: HYPERTENSION
     Dosage: 20 MG
     Route: 048
  6. CITRACAL + D [Concomitant]
     Route: 048

REACTIONS (6)
  - Cough [Not Recovered/Not Resolved]
  - Dizziness [Not Recovered/Not Resolved]
  - Cough [Not Recovered/Not Resolved]
  - Bronchitis [Recovered/Resolved]
  - Upper-airway cough syndrome [Not Recovered/Not Resolved]
  - Pulmonary congestion [Not Recovered/Not Resolved]
